FAERS Safety Report 6456473-6 (Version None)
Quarter: 2009Q4

REPORT INFORMATION
  Report Type: 
  Country: None (occurrence: None)
  Receive Date: 20091125
  Receipt Date: 20091119
  Transmission Date: 20100525
  Serious: Yes (Hospitalization)
  Sender: FDA-Public Use
  Company Number: FR-KINGPHARMUSA00001-K200901452

PATIENT
  Age: 72 Year
  Sex: Male

DRUGS (11)
  1. ALTACE [Suspect]
     Indication: HYPERTENSION
     Dosage: 10 MG, QD
     Route: 048
     Dates: start: 19900101, end: 20081102
  2. CLOPIDOGREL BISULFATE [Suspect]
     Indication: CORONARY ARTERY DISEASE
     Dosage: 75 MG, QD
     Route: 048
     Dates: start: 20081020
  3. SIMVASTATIN [Suspect]
     Indication: DYSLIPIDAEMIA
     Dosage: 40 MG, BID
     Route: 048
     Dates: start: 20000101
  4. MARCUMAR [Suspect]
     Indication: AORTIC VALVE REPLACEMENT
     Dosage: UNK
     Route: 048
     Dates: start: 20031101, end: 20081103
  5. ALLOPURINOL [Suspect]
     Indication: HYPERURICAEMIA
     Dosage: 300 MG, QD
     Route: 048
     Dates: start: 20030101
  6. PETROLATUM [Suspect]
     Indication: HYPERTENSION
     Dosage: 40 MG, QD
     Route: 048
     Dates: end: 20081102
  7. BISOPROLOL [Suspect]
     Indication: ATRIAL FIBRILLATION
     Dosage: 10 MG, QD
     Route: 048
     Dates: start: 20030101
  8. HUMALOG [Suspect]
     Indication: TYPE 2 DIABETES MELLITUS
     Dosage: UNK
     Route: 058
  9. INSULIN HUMAN [Suspect]
     Indication: TYPE 2 DIABETES MELLITUS
     Dosage: 28 U, QD
     Route: 058
  10. PENTAERYTHRITOL TETRANITRATE [Suspect]
     Indication: CORONARY ARTERY DISEASE
     Dosage: 80 MG, BID
     Route: 048
     Dates: start: 20080701
  11. TORSEMIDE [Suspect]
     Indication: HYPERTENSION
     Dosage: 10 MG, QD
     Route: 048
     Dates: start: 20000101

REACTIONS (11)
  - ANAEMIA [None]
  - ASTHENIA [None]
  - CHEST PAIN [None]
  - DYSPNOEA [None]
  - DYSPNOEA EXERTIONAL [None]
  - EPISTAXIS [None]
  - HAEMOLYSIS [None]
  - HAEMORRHAGE [None]
  - MYOCARDIAL INFARCTION [None]
  - NORMOCHROMIC NORMOCYTIC ANAEMIA [None]
  - PALLOR [None]
